FAERS Safety Report 25617975 (Version 1)
Quarter: 2025Q3

REPORT INFORMATION
  Report Type: Spontaneous
  Country: US (occurrence: None)
  Receive Date: 20250729
  Receipt Date: 20250729
  Transmission Date: 20251021
  Serious: Yes (Disabling, Other)
  Sender: FDA-CTU
  Company Number: None

PATIENT
  Age: 30 Year
  Sex: Female
  Weight: 117.93 kg

DRUGS (2)
  1. COSENTYX [Suspect]
     Active Substance: SECUKINUMAB
     Indication: Hidradenitis
     Dosage: 150 MG ONCE A WEEK
     Dates: start: 20241224, end: 20250210
  2. COSENTYX [Suspect]
     Active Substance: SECUKINUMAB
     Indication: Hidradenitis
     Dosage: 150 MG  PER PEN ONCE A WEEK
     Dates: start: 20241224, end: 20250110

REACTIONS (4)
  - Peripheral swelling [None]
  - Erythema [None]
  - Pain in extremity [None]
  - Skin exfoliation [None]

NARRATIVE: CASE EVENT DATE: 20241224
